FAERS Safety Report 13002848 (Version 1)
Quarter: 2016Q4

REPORT INFORMATION
  Report Type: Spontaneous
  Country: US (occurrence: US)
  Receive Date: 20161206
  Receipt Date: 20161206
  Transmission Date: 20170207
  Serious: No
  Sender: FDA-Public Use
  Company Number: None

PATIENT
  Age: 53 Year
  Sex: Male
  Weight: 81 kg

DRUGS (10)
  1. GLUCOSAMINE [Concomitant]
     Active Substance: GLUCOSAMINE
  2. LEMON BIOFLAVINOIDS [Concomitant]
  3. TURMERIC [Concomitant]
     Active Substance: TURMERIC
  4. OXYCONTIN [Suspect]
     Active Substance: OXYCODONE HYDROCHLORIDE
     Indication: ARTHRALGIA
     Dosage: ?          QUANTITY:1 TABLET(S);?
     Route: 048
     Dates: start: 20161124, end: 20161130
  5. NORCO [Concomitant]
     Active Substance: ACETAMINOPHEN\HYDROCODONE BITARTRATE
  6. MIRALAX [Concomitant]
     Active Substance: POLYETHYLENE GLYCOL 3350
  7. MAXZIDE [Concomitant]
     Active Substance: HYDROCHLOROTHIAZIDE\TRIAMTERENE
  8. ELASTIC WRAP TO SURGICAL LEG [Concomitant]
  9. FISH OIL [Concomitant]
     Active Substance: FISH OIL
  10. SENOKOT-S [Concomitant]
     Active Substance: DOCUSATE SODIUM\SENNOSIDES

REACTIONS (6)
  - Flatulence [None]
  - Product substitution issue [None]
  - Dyspepsia [None]
  - Oesophageal spasm [None]
  - Gastrooesophageal reflux disease [None]
  - Constipation [None]

NARRATIVE: CASE EVENT DATE: 20161130
